FAERS Safety Report 17809858 (Version 1)
Quarter: 2020Q2

REPORT INFORMATION
  Report Type: Spontaneous
  Country: FR (occurrence: FR)
  Receive Date: 20200521
  Receipt Date: 20200521
  Transmission Date: 20200714
  Serious: Yes (Hospitalization)
  Sender: FDA-Public Use
  Company Number: FR-SUN PHARMACEUTICAL INDUSTRIES LTD-2020RR-247683

PATIENT
  Age: 82 Year
  Sex: Male
  Weight: 70 kg

DRUGS (1)
  1. OMEPRAZOLE. [Suspect]
     Active Substance: OMEPRAZOLE
     Indication: ABDOMINAL PAIN UPPER
     Dosage: 40 MILLIGRAM, DAILY
     Route: 048
     Dates: start: 20200106, end: 20200223

REACTIONS (3)
  - Lupus-like syndrome [Not Recovered/Not Resolved]
  - Agranulocytosis [Recovered/Resolved]
  - Lupus endocarditis [Not Recovered/Not Resolved]

NARRATIVE: CASE EVENT DATE: 20200224
